FAERS Safety Report 9752862 (Version 1)
Quarter: 2013Q4

REPORT INFORMATION
  Report Type: Spontaneous
  Country: AU (occurrence: AU)
  Receive Date: 20131213
  Receipt Date: 20131213
  Transmission Date: 20140711
  Serious: Yes (Hospitalization)
  Sender: FDA-Public Use
  Company Number: AU-BAXTER-2013BAX049112

PATIENT
  Age: 66 Year
  Sex: Male

DRUGS (2)
  1. KIOVIG NORMAL IMMUNOGLOBULIN (HUMAN) 20G/200ML FOR INTRAVENOUS USE INJ [Suspect]
     Indication: MULTIFOCAL MOTOR NEUROPATHY
     Route: 042
     Dates: start: 20131202, end: 20131202
  2. RILUZOLE [Concomitant]
     Indication: MOTOR NEURONE DISEASE
     Route: 048
     Dates: start: 201308

REACTIONS (1)
  - Unresponsive to stimuli [Recovered/Resolved]
